FAERS Safety Report 4457600-2 (Version None)
Quarter: 2004Q3

REPORT INFORMATION
  Report Type: 
  Country: None (occurrence: None)
  Receive Date: 20040901
  Receipt Date: 20040621
  Transmission Date: 20050211
  Serious: No
  Sender: FDA-Public Use
  Company Number: FROV000209

PATIENT
  Age: 59 Year
  Sex: Male

DRUGS (2)
  1. FROVA [Suspect]
     Indication: MIGRAINE
     Dosage: 5 MG ORAL
     Route: 048
     Dates: start: 20040621
  2. CALIN (CALIN) [Concomitant]

REACTIONS (4)
  - MIGRAINE [None]
  - NAUSEA [None]
  - RETCHING [None]
  - VOMITING [None]
